FAERS Safety Report 7373201-0 (Version None)
Quarter: 2011Q1

REPORT INFORMATION
  Report Type: 
  Country: None (occurrence: None)
  Receive Date: 20110324
  Receipt Date: 20110322
  Transmission Date: 20110831
  Serious: Yes (Hospitalization, Other)
  Sender: FDA-Public Use
  Company Number: BR-ABBOTT-09P-020-0592842-00

PATIENT
  Sex: Male
  Weight: 88 kg

DRUGS (10)
  1. NAPROXEN [Concomitant]
     Indication: PAIN
     Route: 048
  2. PREDSIM [Concomitant]
     Indication: PAIN
     Route: 048
  3. HUMIRA [Suspect]
     Route: 058
     Dates: start: 20081201
  4. IONESIC [Concomitant]
     Indication: PAIN
     Route: 048
  5. PREDSIM [Concomitant]
     Indication: RHEUMATOID ARTHRITIS
     Route: 048
  6. LYRICA [Concomitant]
     Indication: PAIN
     Route: 048
  7. HUMIRA [Suspect]
     Indication: RHEUMATOID ARTHRITIS
     Route: 058
     Dates: start: 20090904, end: 20101201
  8. DIACEREIN [Concomitant]
     Indication: RHEUMATOID ARTHRITIS
     Route: 048
  9. ETNA [Concomitant]
     Indication: PAIN
     Route: 050
     Dates: end: 20101201
  10. ROCALTROL [Concomitant]
     Indication: BLOOD CALCIUM
     Route: 048

REACTIONS (21)
  - DEVICE MATERIAL ISSUE [None]
  - ARTHRITIS BACTERIAL [None]
  - ERYTHEMA [None]
  - WEIGHT DECREASED [None]
  - NODULE [None]
  - WALKING AID USER [None]
  - BACK PAIN [None]
  - GAIT DISTURBANCE [None]
  - OSTEOMYELITIS [None]
  - BURSITIS [None]
  - SKIN DISCOLOURATION [None]
  - BACTERIAL INFECTION [None]
  - MOBILITY DECREASED [None]
  - ARTHROPATHY [None]
  - INFECTION [None]
  - PAIN IN EXTREMITY [None]
  - RASH MACULAR [None]
  - BONE EROSION [None]
  - IMPLANT SITE PAIN [None]
  - OEDEMA PERIPHERAL [None]
  - STAPHYLOCOCCAL INFECTION [None]
